FAERS Safety Report 6400001-8 (Version None)
Quarter: 2009Q4

REPORT INFORMATION
  Report Type: 
  Country: None (occurrence: None)
  Receive Date: 20091014
  Receipt Date: 20091006
  Transmission Date: 20100525
  Serious: No
  Sender: FDA-Public Use
  Company Number: US-ELI_LILLY_AND_COMPANY-US200909005021

PATIENT
  Sex: Male

DRUGS (1)
  1. HUMATROPE [Suspect]
     Indication: OFF LABEL USE
     Dosage: 0.8 MG, UNK
     Dates: start: 20090201, end: 20090401

REACTIONS (1)
  - OFF LABEL USE [None]
